FAERS Safety Report 8031056-5 (Version None)
Quarter: 2011Q4

REPORT INFORMATION
  Report Type: 
  Country: None (occurrence: None)
  Receive Date: 20111202
  Receipt Date: 20090803
  Transmission Date: 20120403
  Serious: Yes (Hospitalization)
  Sender: FDA-Public Use
  Company Number: 2009SP017680

PATIENT
  Age: 26 Year
  Sex: Female
  Weight: 68.0396 kg

DRUGS (5)
  1. ECHINACEA [Concomitant]
  2. CELEBREX [Concomitant]
  3. ACETAMINOPHEN [Concomitant]
  4. NUVARING [Suspect]
     Indication: CONTRACEPTION
     Dosage: 1 DF; QM;
     Dates: start: 20050701, end: 20060206
  5. IBUPROFEN [Concomitant]

REACTIONS (5)
  - PAIN [None]
  - HEADACHE [None]
  - BACK PAIN [None]
  - INAPPROPRIATE SCHEDULE OF DRUG ADMINISTRATION [None]
  - PULMONARY EMBOLISM [None]
